FAERS Safety Report 15802357 (Version 1)
Quarter: 2019Q1

REPORT INFORMATION
  Report Type: Other
  Country: ES (occurrence: ES)
  Receive Date: 20190109
  Receipt Date: 20190109
  Transmission Date: 20190417
  Serious: Yes (Other)
  Sender: FDA-Public Use
  Company Number: ES-APOTEX-2018AP028612

PATIENT
  Age: 27 Year
  Sex: Female
  Weight: 50 kg

DRUGS (2)
  1. ESCITALOPRAM APOTEX [Suspect]
     Active Substance: ESCITALOPRAM OXALATE
     Indication: MEDICAL DIET
     Dosage: UN COMPRIMIDO AL D?A POR LA MA?ANA
     Route: 048
     Dates: start: 20180612
  2. TERBINAFINA                        /00992601/ [Concomitant]
     Indication: FUNGAL INFECTION
     Dosage: UN MES 1COMPRIMIDO AL DIA
     Route: 065

REACTIONS (5)
  - Muscle spasms [Not Recovered/Not Resolved]
  - Tremor [Not Recovered/Not Resolved]
  - Headache [Not Recovered/Not Resolved]
  - Tinnitus [Not Recovered/Not Resolved]
  - Anxiety [Not Recovered/Not Resolved]

NARRATIVE: CASE EVENT DATE: 20180613
